FAERS Safety Report 8917537 (Version 1)
Quarter: 2012Q4

REPORT INFORMATION
  Report Type: 
  Country: US (occurrence: US)
  Receive Date: 20121120
  Receipt Date: 20121120
  Transmission Date: 20130627
  Serious: Yes (Hospitalization, Other)
  Sender: FDA-Public Use
  Company Number: US-ROCHE-1150860

PATIENT
  Age: 69 Year
  Sex: Female
  Weight: 74.4 kg

DRUGS (4)
  1. XELODA [Suspect]
     Indication: BREAST CANCER
     Route: 048
     Dates: start: 20120703, end: 20120821
  2. VANCO [Concomitant]
     Route: 042
  3. PRIMAXIN [Concomitant]
  4. TAXOL [Concomitant]

REACTIONS (9)
  - Diarrhoea [Recovered/Resolved]
  - Cardiac disorder [Unknown]
  - Malaise [Unknown]
  - Sepsis [Recovered/Resolved]
  - Pneumonia [Unknown]
  - Pyrexia [Recovered/Resolved]
  - Feeling cold [Unknown]
  - Palpitations [Unknown]
  - Epistaxis [Unknown]
